FAERS Safety Report 18430980 (Version 1)
Quarter: 2020Q4

REPORT INFORMATION
  Report Type: Spontaneous
  Country: US (occurrence: US)
  Receive Date: 20201027
  Receipt Date: 20201027
  Transmission Date: 20210114
  Serious: Yes (Hospitalization)
  Sender: FDA-Public Use
  Company Number: None

PATIENT
  Age: 79 Year
  Sex: Male

DRUGS (2)
  1. CYCLOPHOSPHAMIDE 50 MG HIKMA [Suspect]
     Active Substance: CYCLOPHOSPHAMIDE
     Indication: PLASMA CELL MYELOMA
     Route: 048
     Dates: start: 202007
  2. ACYCLOVIR 400 MG CARLSBAD TECHNOLOGIES [Suspect]
     Active Substance: ACYCLOVIR
     Indication: PLASMA CELL MYELOMA
     Route: 048
     Dates: start: 202007

REACTIONS (2)
  - Sepsis [None]
  - Therapy interrupted [None]

NARRATIVE: CASE EVENT DATE: 202008
